FAERS Safety Report 5056401-4 (Version None)
Quarter: 2006Q3

REPORT INFORMATION
  Report Type: 
  Country: None (occurrence: None)
  Receive Date: 20060717
  Receipt Date: 20060704
  Transmission Date: 20061208
  Serious: Yes (Death)
  Sender: FDA-Public Use
  Company Number: 2006083619

PATIENT
  Age: 55 Year
  Sex: Male

DRUGS (7)
  1. SUTENT [Suspect]
     Indication: DRUG USE FOR UNKNOWN INDICATION
     Dosage: 50 MG (50 MG, 1 IN 1 D), ORAL
     Route: 048
     Dates: start: 20060524, end: 20060630
  2. LASIX [Concomitant]
  3. FLUCONAZOLE [Concomitant]
  4. TRIMEBUTINE MALEATE (TRIMEBUTINE MALEATE) [Concomitant]
  5. AMITRIPTYLINE HCL [Concomitant]
  6. NEURONTIN [Concomitant]
  7. DOMPERIDONE (DOMPERIDONE) [Concomitant]

REACTIONS (2)
  - DISEASE PROGRESSION [None]
  - LYMPHANGIOSIS CARCINOMATOSA [None]
